FAERS Safety Report 17296292 (Version 1)
Quarter: 2020Q1

REPORT INFORMATION
  Report Type: Spontaneous
  Country: US (occurrence: US)
  Receive Date: 20200121
  Receipt Date: 20200121
  Transmission Date: 20200409
  Serious: Yes (Hospitalization, Other)
  Sender: FDA-Public Use
  Company Number: US-PFIZER INC-2020024144

PATIENT
  Age: 62 Year
  Sex: Female
  Weight: 119 kg

DRUGS (6)
  1. CILASTATIN/IMIPENEM [Suspect]
     Active Substance: CILASTATIN SODIUM\IMIPENEM
     Dosage: 250 MG, UNK
     Route: 042
  2. CILASTATIN/IMIPENEM [Suspect]
     Active Substance: CILASTATIN SODIUM\IMIPENEM
     Indication: PNEUMONIA PSEUDOMONAL
     Dosage: 250 MG, UNK ((250 MG OF ANHYDROUS IMIPENEM AND 250 MG OF CILASTATIN FOR 21 DAYS)
     Route: 042
  3. VANCOMYCIN HCL [Suspect]
     Active Substance: VANCOMYCIN HYDROCHLORIDE
     Indication: PNEUMONIA PSEUDOMONAL
     Dosage: 1 G, UNK (RANDOM DOSING)
  4. TAZOBACTAM SODIUM AND PIPERACILLIN SODIUM [Concomitant]
     Active Substance: PIPERACILLIN SODIUM\TAZOBACTAM SODIUM
     Indication: PNEUMONIA PSEUDOMONAL
     Dosage: 2.25 G, 4X/DAY (PIPERACILLIN 2 G AND TAZOBACTAM 0.25 G)
     Route: 042
  5. TOBI [Suspect]
     Active Substance: TOBRAMYCIN
     Indication: PNEUMONIA PSEUDOMONAL
     Dosage: 300  MG, 2X/DAY
     Route: 055
  6. FUROSEMIDE. [Suspect]
     Active Substance: FUROSEMIDE
     Dosage: UNK

REACTIONS (1)
  - Acute kidney injury [Not Recovered/Not Resolved]
